FAERS Safety Report 14914612 (Version 1)
Quarter: 2018Q2

REPORT INFORMATION
  Report Type: Spontaneous
  Country: DE (occurrence: DE)
  Receive Date: 20180518
  Receipt Date: 20180518
  Transmission Date: 20180711
  Serious: Yes (Hospitalization)
  Sender: FDA-Public Use
  Company Number: DE-ASTRAZENECA-2018SE62340

PATIENT
  Age: 85 Year
  Sex: Male
  Weight: 70 kg

DRUGS (6)
  1. JANUMET [Suspect]
     Active Substance: METFORMIN HYDROCHLORIDE\SITAGLIPTIN PHOSPHATE
     Dosage: 50|850 MG, 1-0-1,TABLETS
     Route: 048
  2. HUMALOG MIX [Suspect]
     Active Substance: INSULIN LISPRO
     Dosage: 16-0-12, SOLUTION FOR INJECTION-/INFUSION
     Route: 058
  3. XARELTO [Concomitant]
     Active Substance: RIVAROXABAN
     Dosage: 20 MG, 1-0-0, TABLET
     Route: 048
  4. FORXIGA [Suspect]
     Active Substance: DAPAGLIFLOZIN
     Dosage: 10 MG, 1-0-0, TABLETS
     Route: 048
  5. NOVAMINSULFON [Concomitant]
     Active Substance: METAMIZOLE
     Dosage: 500 MG, B.B., TABLET
     Route: 048
  6. METOPROLOL. [Concomitant]
     Active Substance: METOPROLOL
     Dosage: 95 MG, 1/2-0-0, TABLET
     Route: 048

REACTIONS (2)
  - Hyperglycaemia [Unknown]
  - Drug administration error [Unknown]

NARRATIVE: CASE EVENT DATE: 20170516
